FAERS Safety Report 15372378 (Version 2)
Quarter: 2019Q2

REPORT INFORMATION
  Report Type: Report from Study
  Country: US (occurrence: US)
  Receive Date: 20180911
  Receipt Date: 20190603
  Transmission Date: 20190711
  Serious: Yes (Hospitalization, Other)
  Sender: FDA-Public Use
  Company Number: US-THERATECHNOLOGIES, INC.-TH-2018-00357

PATIENT

DRUGS (31)
  1. ATENOLOL AND CHLORTHALIDONE [Concomitant]
     Active Substance: ATENOLOL\CHLORTHALIDONE
     Dosage: 50/25 MG
  2. HYDROXYZINE [Concomitant]
     Active Substance: HYDROXYZINE HYDROCHLORIDE
     Dosage: UNK
  3. VITAMIN B12 [Concomitant]
     Active Substance: CYANOCOBALAMIN
     Dosage: UNK
  4. INSULIN [Concomitant]
     Active Substance: INSULIN NOS
     Dosage: UNK
  5. ALPRAZOLAM. [Concomitant]
     Active Substance: ALPRAZOLAM
     Dosage: 1 MG MILLIGRAM(S), UNK
  6. NAPROXEN. [Concomitant]
     Active Substance: NAPROXEN
     Dosage: UNK
  7. CLONAZEPAM. [Concomitant]
     Active Substance: CLONAZEPAM
     Dosage: 1 MG MILLIGRAM(S), UNK
  8. PREZISTA [Concomitant]
     Active Substance: DARUNAVIR ETHANOLATE
     Dosage: UNK
  9. PROMETHAZINE [Concomitant]
     Active Substance: PROMETHAZINE\PROMETHAZINE HYDROCHLORIDE
     Dosage: UNK
  10. IBUPROFEN. [Concomitant]
     Active Substance: IBUPROFEN
     Dosage: UNK
  11. VICTOZA [Concomitant]
     Active Substance: LIRAGLUTIDE
     Dosage: 18 MG/3ML
  12. ABILIFY [Concomitant]
     Active Substance: ARIPIPRAZOLE
     Dosage: UNK
  13. OMEPRAZOLE. [Concomitant]
     Active Substance: OMEPRAZOLE
     Dosage: UNK
  14. DOXEPIN [Concomitant]
     Active Substance: DOXEPIN
     Dosage: 150 MG MILLIGRAM(S), UNK
  15. EGRIFTA [Suspect]
     Active Substance: TESAMORELIN
     Dosage: 2 MG MILLIGRAM(S), DAILY DOSE
     Route: 058
     Dates: start: 201808
  16. XANAX [Concomitant]
     Active Substance: ALPRAZOLAM
     Dosage: UNK
  17. INHALER [Concomitant]
     Active Substance: UNSPECIFIED INGREDIENT
     Dosage: UNK
  18. OXYCODONE [Concomitant]
     Active Substance: OXYCODONE
     Dosage: UNK
  19. FETZIMA [Concomitant]
     Active Substance: LEVOMILNACIPRAN HYDROCHLORIDE
     Dosage: 40 MG MILLIGRAM(S), UNK
  20. AMOXICILLIN. [Concomitant]
     Active Substance: AMOXICILLIN
     Dosage: 500 MG MILLIGRAM(S), UNK
  21. EGRIFTA [Suspect]
     Active Substance: TESAMORELIN
     Dosage: 2 MG MILLIGRAM(S), DAILY DOSE
     Route: 058
     Dates: start: 2017, end: 201802
  22. ACYCLOVIR                          /00587301/ [Concomitant]
     Active Substance: ACYCLOVIR
     Dosage: UNK
  23. PRISTIQ EXTENDED-RELEASE [Concomitant]
     Active Substance: DESVENLAFAXINE SUCCINATE
     Dosage: UNK
  24. OTHER THERAPEUTIC PRODUCTS [Concomitant]
     Active Substance: UNSPECIFIED INGREDIENT
     Dosage: UNK
  25. FLEXERIL [Concomitant]
     Active Substance: CYCLOBENZAPRINE HYDROCHLORIDE
     Dosage: UNK
  26. ADDERALL [Concomitant]
     Active Substance: AMPHETAMINE ASPARTATE\AMPHETAMINE SULFATE\DEXTROAMPHETAMINE SACCHARATE\DEXTROAMPHETAMINE SULFATE
     Dosage: 20 MG MILLIGRAM(S), UNK
  27. BENZOATE [Concomitant]
     Active Substance: BENZOIC ACID
     Dosage: 200 MG MILLIGRAM(S), UNK
  28. ASPIRIN. [Concomitant]
     Active Substance: ASPIRIN
     Dosage: UNK
  29. KEPPRA [Concomitant]
     Active Substance: LEVETIRACETAM
     Dosage: UNK
  30. AMPHETAMINE [Concomitant]
     Active Substance: AMPHETAMINE
     Dosage: 20 MG MILLIGRAM(S), UNK
  31. CYCLOBENZAPRINE. [Concomitant]
     Active Substance: CYCLOBENZAPRINE
     Dosage: 10 MG MILLIGRAM(S), UNK

REACTIONS (3)
  - Pneumocystis jirovecii pneumonia [Recovered/Resolved]
  - Hip arthroplasty [Recovered/Resolved]
  - Herpes zoster [Recovering/Resolving]

NARRATIVE: CASE EVENT DATE: 201801
